FAERS Safety Report 17273453 (Version 1)
Quarter: 2020Q1

REPORT INFORMATION
  Report Type: Spontaneous
  Country: US (occurrence: US)
  Receive Date: 20191224
  Receipt Date: 20191224
  Transmission Date: 20200409
  Serious: Yes (Hospitalization)
  Sender: FDA-Public Use
  Company Number: None

PATIENT
  Age: 72 Year
  Sex: Female

DRUGS (2)
  1. DOFETILIDE 250MCG CAP [Suspect]
     Active Substance: DOFETILIDE
     Indication: ATRIAL FIBRILLATION
     Route: 048
     Dates: start: 20191027
  2. FORTEO [Suspect]
     Active Substance: TERIPARATIDE
     Indication: ATRIAL FIBRILLATION
     Dosage: ?          OTHER STRENGTH:600/2.4 UG/ML;OTHER DOSE:600/2.4 UG/ML;?
     Dates: start: 20190710

REACTIONS (3)
  - Neck injury [None]
  - Fall [None]
  - Head injury [None]

NARRATIVE: CASE EVENT DATE: 20191030
